FAERS Safety Report 9621347 (Version 1)
Quarter: 2013Q4

REPORT INFORMATION
  Report Type: Spontaneous
  Country: US (occurrence: US)
  Receive Date: 20131015
  Receipt Date: 20131015
  Transmission Date: 20140711
  Serious: Yes (Other)
  Sender: FDA-Public Use
  Company Number: PHEH2013US021306

PATIENT
  Sex: Female

DRUGS (2)
  1. DIOVAN [Suspect]
     Dosage: 60 MG, UNK
  2. AMLODIPINE BESYLATE [Suspect]
     Dosage: 5 MG, UNK

REACTIONS (1)
  - Dementia Alzheimer^s type [Unknown]
